FAERS Safety Report 13478667 (Version 1)
Quarter: 2017Q2

REPORT INFORMATION
  Report Type: Not Available
  Country: US (occurrence: US)
  Receive Date: 20170425
  Receipt Date: 20170425
  Transmission Date: 20170830
  Serious: No
  Sender: FDA-Public Use
  Company Number: US-MEDIMETRIKS-2016-US-005845

PATIENT
  Age: 43 Year
  Sex: Female
  Weight: 74.84 kg

DRUGS (2)
  1. NEO-SYNALAR [Suspect]
     Active Substance: FLUOCINOLONE ACETONIDE\NEOMYCIN SULFATE
     Dosage: TWICE DAILY TO SCALP
     Route: 061
     Dates: start: 20160616, end: 20160805
  2. SINGULAIR [Concomitant]
     Active Substance: MONTELUKAST SODIUM
     Dosage: UNKNOWN
     Route: 065

REACTIONS (1)
  - Drug ineffective [Unknown]

NARRATIVE: CASE EVENT DATE: 20160616
